FAERS Safety Report 8078479-6 (Version None)
Quarter: 2012Q1

REPORT INFORMATION
  Report Type: 
  Country: None (occurrence: None)
  Receive Date: 20120123
  Receipt Date: 20111222
  Transmission Date: 20120608
  Serious: No
  Sender: FDA-Public Use
  Company Number: 2011-01335

PATIENT
  Age: 56 Year
  Sex: Male

DRUGS (2)
  1. ZICAM COLD REMEDY NASAL GEL [Suspect]
     Indication: NASOPHARYNGITIS
     Dates: start: 20090101, end: 20090301
  2. DEXALENT [Concomitant]

REACTIONS (4)
  - ANOSMIA [None]
  - PRODUCT QUALITY ISSUE [None]
  - AGEUSIA [None]
  - MEMORY IMPAIRMENT [None]
